FAERS Safety Report 6332331-2 (Version None)
Quarter: 2009Q3

REPORT INFORMATION
  Report Type: 
  Country: None (occurrence: None)
  Receive Date: 20090828
  Receipt Date: 20090820
  Transmission Date: 20100115
  Serious: Yes (Other)
  Sender: FDA-Public Use
  Company Number: US-JNJFOC-20090807041

PATIENT
  Age: 16 Year
  Sex: Female
  Weight: 68.49 kg

DRUGS (1)
  1. TYLENOL COLD RELIEF DAY [Suspect]
     Indication: SINUS CONGESTION
     Route: 048

REACTIONS (1)
  - HYPERSENSITIVITY [None]
